FAERS Safety Report 8432598-0 (Version None)
Quarter: 2012Q2

REPORT INFORMATION
  Report Type: 
  Country: None (occurrence: None)
  Receive Date: 20120613
  Receipt Date: 20120605
  Transmission Date: 20120825
  Serious: Yes (Other)
  Sender: FDA-Public Use
  Company Number: US-AMGEN-USASP2012035022

PATIENT
  Age: 59 Year
  Sex: Male

DRUGS (1)
  1. ENBREL [Suspect]
     Indication: PSORIATIC ARTHROPATHY
     Dosage: 50 MG, Q2WK
     Dates: start: 20070421

REACTIONS (4)
  - BACK PAIN [None]
  - PROSTATE CANCER [None]
  - RASH ERYTHEMATOUS [None]
  - RASH MACULAR [None]
